FAERS Safety Report 14315446 (Version 7)
Quarter: 2018Q2

REPORT INFORMATION
  Report Type: Spontaneous
  Country: US (occurrence: US)
  Receive Date: 20171221
  Receipt Date: 20180620
  Transmission Date: 20180711
  Serious: Yes (Hospitalization)
  Sender: FDA-Public Use
  Company Number: US-ACTELION-A-NJ2017-164562

PATIENT
  Age: 63 Year
  Sex: Female

DRUGS (4)
  1. VELETRI [Suspect]
     Active Substance: EPOPROSTENOL
     Indication: PULMONARY ARTERIAL HYPERTENSION
     Dosage: 15.2 NG/KG, PER MIN
     Route: 042
     Dates: start: 20150415
  2. VELETRI [Suspect]
     Active Substance: EPOPROSTENOL
     Dosage: 19 NG/KG, PER MIN
     Route: 042
  3. O2 [Concomitant]
  4. VELETRI [Suspect]
     Active Substance: EPOPROSTENOL
     Dosage: 17.8 NG/KG, PER MIN
     Route: 042

REACTIONS (7)
  - Pain in jaw [Unknown]
  - Feeling abnormal [Unknown]
  - Bronchitis [Unknown]
  - Flushing [Unknown]
  - Fluid retention [Unknown]
  - Oxygen consumption increased [Unknown]
  - Dyspnoea [Unknown]

NARRATIVE: CASE EVENT DATE: 20171209
